FAERS Safety Report 5942447-8 (Version None)
Quarter: 2008Q4

REPORT INFORMATION
  Report Type: 
  Country: None (occurrence: None)
  Receive Date: 20081105
  Receipt Date: 20081027
  Transmission Date: 20090506
  Serious: Yes (Other)
  Sender: FDA-Public Use
  Company Number: JP-AMGEN-US317079

PATIENT
  Age: 66 Year
  Sex: Female

DRUGS (7)
  1. ENBREL [Suspect]
     Indication: RHEUMATOID ARTHRITIS
     Route: 058
     Dates: start: 20080808, end: 20081017
  2. FOLIAMIN [Concomitant]
     Route: 065
  3. DIOVAN [Concomitant]
     Route: 065
  4. CYTOTEC [Concomitant]
     Route: 065
  5. RHEUMATREX [Concomitant]
     Route: 065
  6. MUCOSTA [Concomitant]
     Route: 065
  7. NICARDIPINE HYDROCHLORIDE [Concomitant]
     Route: 065

REACTIONS (2)
  - GASTROINTESTINAL HAEMORRHAGE [None]
  - SINUS ARREST [None]
